FAERS Safety Report 7585595-1 (Version None)
Quarter: 2011Q2

REPORT INFORMATION
  Report Type: 
  Country: None (occurrence: None)
  Receive Date: 20110603
  Receipt Date: 20110204
  Transmission Date: 20111010
  Serious: No
  Sender: FDA-Public Use
  Company Number: 201102013

PATIENT
  Age: 60 Year
  Sex: Male
  Weight: 88.4514 kg

DRUGS (5)
  1. ANESTETICS, LOCAL (ANESTHETICS, LOCAL) [Suspect]
     Dosage: INJECTED TWICE, INJECTION
     Dates: start: 20110201, end: 20110201
  2. VITAMIN D [Concomitant]
  3. MULTIVITAMIN [Concomitant]
  4. A PROBIOTIC (LACTOBACILLUS REUTERI) [Concomitant]
  5. XIAFLEX [Suspect]
     Indication: DUPUYTREN'S CONTRACTURE
     Dosage: 1 IN 1 D, INTRALESIONAL
     Route: 026
     Dates: start: 20110131, end: 20110131

REACTIONS (3)
  - PAIN IN EXTREMITY [None]
  - PAIN [None]
  - OEDEMA PERIPHERAL [None]
